FAERS Safety Report 7705682-4 (Version None)
Quarter: 2011Q3

REPORT INFORMATION
  Report Type: 
  Country: None (occurrence: None)
  Receive Date: 20110824
  Receipt Date: 20110808
  Transmission Date: 20111222
  Serious: Yes (Other)
  Sender: FDA-Public Use
  Company Number: US-BAYER-2011-038726

PATIENT
  Age: 30 Year
  Sex: Female
  Weight: 82 kg

DRUGS (8)
  1. IBUPROFEN [Concomitant]
     Dosage: UNK UNK, PRN
  2. METFORMIN HCL [Concomitant]
     Indication: DIABETES MELLITUS
     Dosage: 500 MG, UNK
     Route: 048
     Dates: start: 20040101
  3. YAZ [Suspect]
     Indication: CONTRACEPTION
     Dosage: UNK
     Dates: start: 20080516, end: 20090301
  4. MEDROXYPROGESTERONE [Concomitant]
     Dosage: UNK
     Dates: start: 20080101, end: 20100101
  5. IMITREX [Concomitant]
     Indication: MIGRAINE
     Dosage: 50 MG, UNK
     Route: 048
     Dates: start: 20080325, end: 20081216
  6. PROMETHAZINE [Concomitant]
     Dosage: 12.5 MG, UNK
  7. YAZ [Suspect]
     Indication: PREMENSTRUAL SYNDROME
  8. ACETAMINOPHEN AND OXYCODONE HCL [Concomitant]
     Dosage: UNK
     Route: 048
     Dates: start: 20081224

REACTIONS (4)
  - CHOLECYSTITIS [None]
  - CHOLELITHIASIS [None]
  - GALLBLADDER INJURY [None]
  - ABDOMINAL PAIN [None]
